FAERS Safety Report 6582913-8 (Version None)
Quarter: 2010Q1

REPORT INFORMATION
  Report Type: 
  Country: None (occurrence: None)
  Receive Date: 20100216
  Receipt Date: 20100205
  Transmission Date: 20100710
  Serious: Yes (Other)
  Sender: FDA-Public Use
  Company Number: CH-JNJFOC-20100204443

PATIENT
  Sex: Male

DRUGS (1)
  1. REMICADE [Suspect]
     Indication: CROHN'S DISEASE
     Dosage: 36 INFUSIONS ON UNPSECIFIED DATES
     Route: 042

REACTIONS (6)
  - BRONCHOSPASM [None]
  - CHEST DISCOMFORT [None]
  - FLUSHING [None]
  - GENERAL SYMPTOM [None]
  - INFUSION RELATED REACTION [None]
  - PALPITATIONS [None]
